FAERS Safety Report 7502487-4 (Version None)
Quarter: 2011Q2

REPORT INFORMATION
  Report Type: 
  Country: None (occurrence: None)
  Receive Date: 20110523
  Receipt Date: 20110523
  Transmission Date: 20111010
  Serious: Yes (Disabling)
  Sender: FDA-Public Use
  Company Number: None

PATIENT
  Sex: Male
  Weight: 70.3075 kg

DRUGS (1)
  1. ZOMETA [Suspect]
     Indication: PROSTATE CANCER
     Dosage: 4 MG MONTHLY IV
     Route: 042
     Dates: start: 20090301, end: 20100901

REACTIONS (14)
  - GINGIVAL PAIN [None]
  - OEDEMA PERIPHERAL [None]
  - DENTAL CARIES [None]
  - TOOTH EXTRACTION [None]
  - MOVEMENT DISORDER [None]
  - IMPAIRED WORK ABILITY [None]
  - LOOSE TOOTH [None]
  - TOOTH LOSS [None]
  - PAIN IN JAW [None]
  - ORAL PAIN [None]
  - NO THERAPEUTIC RESPONSE [None]
  - TREMOR [None]
  - PAIN [None]
  - APHAGIA [None]
